FAERS Safety Report 11379545 (Version 1)
Quarter: 2015Q3

REPORT INFORMATION
  Report Type: Spontaneous
  Country: SG (occurrence: SG)
  Receive Date: 20150814
  Receipt Date: 20150814
  Transmission Date: 20151125
  Serious: Yes (Other)
  Sender: FDA-Public Use
  Company Number: SG-SUN PHARMACEUTICAL INDUSTRIES LTD-2015R1-101115

PATIENT
  Age: 59 Year
  Sex: Male

DRUGS (3)
  1. METRONIDAZOLE. [Suspect]
     Active Substance: METRONIDAZOLE
     Indication: ABDOMINAL INFECTION
     Dosage: 400 MG, TID
     Route: 065
  2. CIPROFLOXACIN. [Suspect]
     Active Substance: CIPROFLOXACIN
     Indication: ABDOMINAL INFECTION
     Dosage: 500 MG, BID
     Route: 048
  3. CIPROFLOXACIN. [Suspect]
     Active Substance: CIPROFLOXACIN
     Indication: ABDOMINAL INFECTION
     Dosage: UNK
     Route: 051

REACTIONS (5)
  - Nausea [Unknown]
  - Ataxia [Recovering/Resolving]
  - Cerebellar syndrome [Unknown]
  - Vomiting [Unknown]
  - Toxicity to various agents [Unknown]
